FAERS Safety Report 5528071-X (Version None)
Quarter: 2007Q4

REPORT INFORMATION
  Report Type: 
  Country: None (occurrence: None)
  Receive Date: 20071121
  Receipt Date: 20071109
  Transmission Date: 20080405
  Serious: Yes (Life-Threatening)
  Sender: FDA-Public Use
  Company Number: 2007P1000700

PATIENT
  Age: 17 Year
  Sex: Female

DRUGS (1)
  1. BUSULFAN (BUSULFAN) [Suspect]
     Indication: STEM CELL TRANSPLANT
     Dosage: 28.4 ML;QV;IV
     Dates: start: 20050705, end: 20070708

REACTIONS (2)
  - BONE MARROW TRANSPLANT REJECTION [None]
  - WHITE BLOOD CELL COUNT DECREASED [None]
